FAERS Safety Report 9465507 (Version 1)
Quarter: 2013Q3

REPORT INFORMATION
  Report Type: Spontaneous
  Country: DE (occurrence: DE)
  Receive Date: 20130820
  Receipt Date: 20130820
  Transmission Date: 20140515
  Serious: Yes (Other)
  Sender: FDA-Public Use
  Company Number: DE-BRISTOL-MYERS SQUIBB COMPANY-19196120

PATIENT
  Age: 61 Year
  Sex: Female

DRUGS (4)
  1. SPRYCEL [Suspect]
     Dosage: TABS
  2. AMLODIPINE [Concomitant]
  3. VALSARTAN [Concomitant]
  4. PANTOZOL [Concomitant]

REACTIONS (3)
  - Anorectal disorder [Not Recovered/Not Resolved]
  - Rectal haemorrhage [Not Recovered/Not Resolved]
  - Haemoglobin decreased [Unknown]
